FAERS Safety Report 5604499-4 (Version None)
Quarter: 2008Q1

REPORT INFORMATION
  Report Type: 
  Country: None (occurrence: None)
  Receive Date: 20080128
  Receipt Date: 20080114
  Transmission Date: 20080703
  Serious: Yes (Congenital Anomaly)
  Sender: FDA-Public Use
  Company Number: ES-ROCHE-541757

PATIENT
  Sex: Female
  Weight: 3.1 kg

DRUGS (2)
  1. MYCOPHENOLATE MOFETIL [Suspect]
     Indication: PROPHYLAXIS
  2. TACROLIMUS [Concomitant]

REACTIONS (6)
  - CLEFT LIP [None]
  - CLEFT PALATE [None]
  - EYELID PTOSIS [None]
  - HYPERTELORISM OF ORBIT [None]
  - MICROGNATHIA [None]
  - MICROTIA [None]
